FAERS Safety Report 5724685-2 (Version None)
Quarter: 2008Q2

REPORT INFORMATION
  Report Type: 
  Country: None (occurrence: None)
  Receive Date: 20080428
  Receipt Date: 20080417
  Transmission Date: 20081010
  Serious: Yes (Other)
  Sender: FDA-Public Use
  Company Number: 2008-00292

PATIENT
  Age: 60 Year
  Sex: Male
  Weight: 77 kg

DRUGS (18)
  1. VELCADE [Suspect]
     Indication: MULTIPLE MYELOMA
     Dosage: 2.30 MG,  INTRAVENOUS; 1.30 MG/M2, INTRAVENOUS
     Route: 042
     Dates: start: 20071211, end: 20071218
  2. VELCADE [Suspect]
     Indication: MULTIPLE MYELOMA
     Dosage: 2.30 MG,  INTRAVENOUS; 1.30 MG/M2, INTRAVENOUS
     Route: 042
     Dates: start: 20080108
  3. TIZANIDINE HCL [Concomitant]
  4. MUCOSTA (REBAMIPIDE) [Concomitant]
  5. OMEPRAZOLE [Concomitant]
  6. AMLODIPINE BESYLATE [Concomitant]
  7. OLMESARTAN MEDOXOMIL [Concomitant]
  8. TAMSULOSIN HCL [Concomitant]
  9. UBRETID (DISTIGMINE BROMIDE) [Concomitant]
  10. LOXOPROFEN SODIUM (LOXOPROFEN SODIUM) [Concomitant]
  11. LASIX [Concomitant]
  12. HERBAL MEDICINE [Concomitant]
  13. TERPERAN (METOCLOPRAMIDE HYDROCHLORIDE) [Concomitant]
  14. ATARAX [Concomitant]
  15. CEFOTIAM HYDROCHLORIDE [Concomitant]
  16. BIOFERMIN R (STREPTOCOCCUS FAECALIS) [Concomitant]
  17. VITAMIDEN [Concomitant]
  18. ZITHROMAX [Concomitant]

REACTIONS (1)
  - NEUROGENIC BLADDER [None]
